FAERS Safety Report 19443892 (Version 1)
Quarter: 2021Q2

REPORT INFORMATION
  Report Type: Other
  Country: DE (occurrence: DE)
  Receive Date: 20210621
  Receipt Date: 20210621
  Transmission Date: 20210717
  Serious: No
  Sender: FDA-Public Use
  Company Number: DE-LUPIN PHARMACEUTICALS INC.-2021-10325

PATIENT
  Age: 30 Year
  Sex: Female
  Weight: 90 kg

DRUGS (5)
  1. SERTRALINE [Suspect]
     Active Substance: SERTRALINE HYDROCHLORIDE
     Indication: DEPRESSION
     Dosage: 200 MILLIGRAM, QD (0. ? 39.1. GESTATIONAL WEEK)
     Route: 048
     Dates: start: 20191217, end: 20200916
  2. MIRTAZAPINE. [Suspect]
     Active Substance: MIRTAZAPINE
     Indication: SLEEP DISORDER
     Dosage: 7.5 MILLIGRAM, BID (9.2. ? 38.3. GESTATIONAL WEEK)
     Route: 048
     Dates: start: 20200220, end: 20200911
  3. FOLSAN [Concomitant]
     Active Substance: FOLIC ACID
     Indication: PROPHYLAXIS OF NEURAL TUBE DEFECT
     Dosage: UNK (6.6 ? 39.0 GESTATIONAL WEEK)
     Route: 048
     Dates: start: 20200203, end: 20200915
  4. BOOSTRIX POLIO [Concomitant]
     Active Substance: DIPHTHERIA AND TETANUS TOXOIDS AND ACELLULAR PERTUSSIS ADSORBED AND INACTIVATED POLIOVIRUS VACCINE
     Indication: IMMUNISATION
     Dosage: UNK (35. ? 35. GESTATIONAL WEEK)
     Route: 030
     Dates: start: 20200818, end: 20200818
  5. TRAZODONE [Concomitant]
     Active Substance: TRAZODONE HYDROCHLORIDE
     Indication: SLEEP DISORDER
     Dosage: 50 MILLIGRAM, QD (0. ? 9.1. GESTATIONAL WEEK)
     Route: 048
     Dates: start: 20191217, end: 20200219

REACTIONS (2)
  - Exposure during pregnancy [Unknown]
  - Off label use [Unknown]
